FAERS Safety Report 8881208 (Version 3)
Quarter: 2013Q4

REPORT INFORMATION
  Report Type: Report from Study
  Country: CA (occurrence: CA)
  Receive Date: 20121031
  Receipt Date: 20131022
  Transmission Date: 20140711
  Serious: Yes (Other)
  Sender: FDA-Public Use
  Company Number: CA-ROCHE-1149845

PATIENT
  Age: 72 Year
  Sex: Female
  Weight: 72.64 kg

DRUGS (11)
  1. RITUXAN [Suspect]
     Indication: RHEUMATOID ARTHRITIS
     Dosage: DAY1 AND DAY 15
     Route: 042
     Dates: start: 20120511
  2. IBUPROFEN [Suspect]
     Indication: RHEUMATOID ARTHRITIS
     Route: 065
  3. CLONAZEPAM [Concomitant]
     Route: 065
  4. CELEBREX [Concomitant]
  5. OMEPRAZOLE [Concomitant]
  6. DIPHENHYDRAMINE HCL [Concomitant]
     Route: 048
     Dates: start: 20120511
  7. ACETAMINOPHEN [Concomitant]
     Route: 048
     Dates: start: 20120511
  8. METHYLPREDNISOLONE [Concomitant]
     Route: 042
     Dates: start: 20120511
  9. CITALOPRAM [Concomitant]
  10. TYLENOL EXTRA STRENGTH [Concomitant]
  11. SYNTHROID [Concomitant]

REACTIONS (4)
  - Red blood cell sedimentation rate increased [Not Recovered/Not Resolved]
  - Abdominal pain upper [Recovering/Resolving]
  - Arthralgia [Unknown]
  - Labile blood pressure [Recovered/Resolved]
